FAERS Safety Report 12483197 (Version 3)
Quarter: 2016Q3

REPORT INFORMATION
  Report Type: Report from Study
  Country: US (occurrence: US)
  Receive Date: 20160621
  Receipt Date: 20160714
  Transmission Date: 20161109
  Serious: Yes (Hospitalization, Other)
  Sender: FDA-Public Use
  Company Number: US-009507513-1606USA007778

PATIENT
  Age: 12 Year
  Sex: Male
  Weight: 50 kg

DRUGS (20)
  1. CRIZOTINIB [Suspect]
     Active Substance: CRIZOTINIB
     Indication: ANAPLASTIC LARGE CELL LYMPHOMA T- AND NULL-CELL TYPES
     Dosage: 165 MG/M2, BID
     Route: 048
     Dates: start: 20151130, end: 2016
  2. DOXORUBICIN HYDROCHLORIDE. [Suspect]
     Active Substance: DOXORUBICIN HYDROCHLORIDE
     Dosage: 25 MG/M2, QD, OVER 1-15 MINUTES, ON DAYS 4 AND 5, CYCLE 6
     Route: 042
     Dates: start: 20160405, end: 20160406
  3. LEUCOVORIN. [Suspect]
     Active Substance: LEUCOVORIN
     Dosage: UNK
     Dates: start: 20160221, end: 20160222
  4. MESNA. [Suspect]
     Active Substance: MESNA
     Dosage: UNK
     Dates: start: 20160312, end: 20160316
  5. LEUCOVORIN. [Suspect]
     Active Substance: LEUCOVORIN
     Dosage: UNK
     Dates: start: 20151231, end: 20160301
  6. DEXAMETHASONE. [Suspect]
     Active Substance: DEXAMETHASONE
     Dosage: 5 MG/M2, BID, CYCLE 6, ON DAYS 1-5
     Route: 048
     Dates: start: 20160402, end: 20160406
  7. CYCLOPHOSPHAMIDE. [Suspect]
     Active Substance: CYCLOPHOSPHAMIDE
     Indication: ANAPLASTIC LARGE CELL LYMPHOMA T- AND NULL-CELL TYPES
     Dosage: 200 MG/M2, OVER 15-30 MINUTES
     Route: 042
     Dates: start: 20151130, end: 2016
  8. LEUCOVORIN. [Suspect]
     Active Substance: LEUCOVORIN
     Dosage: UNK
     Dates: start: 20150209, end: 20150210
  9. LEUCOVORIN. [Suspect]
     Active Substance: LEUCOVORIN
     Dosage: UNK
     Dates: start: 20160123, end: 20160124
  10. DOXORUBICIN HYDROCHLORIDE. [Suspect]
     Active Substance: DOXORUBICIN HYDROCHLORIDE
     Indication: ANAPLASTIC LARGE CELL LYMPHOMA T- AND NULL-CELL TYPES
     Dosage: 25 MG/M2, QD, OVER 1-15 MINUTES
     Route: 042
     Dates: start: 20151130, end: 2016
  11. FOLINIC ACID [Concomitant]
     Active Substance: LEUCOVORIN
     Dosage: CYCLE 6
     Dates: start: 20160403, end: 20160409
  12. DEXAMETHASONE. [Suspect]
     Active Substance: DEXAMETHASONE
     Indication: ANAPLASTIC LARGE CELL LYMPHOMA T- AND NULL-CELL TYPES
     Dosage: 5 MG/M2, BID,
     Route: 048
     Dates: start: 20151130, end: 2016
  13. CYCLOPHOSPHAMIDE. [Suspect]
     Active Substance: CYCLOPHOSPHAMIDE
     Dosage: 200 MG/M2, OVER 15-30 MINUTES, ON DAYS 1 AND 5, CYCLE 6
     Route: 042
     Dates: start: 20160402, end: 20160406
  14. MESNA. [Suspect]
     Active Substance: MESNA
     Dosage: UNK
     Dates: start: 20160122, end: 20160126
  15. CRIZOTINIB [Suspect]
     Active Substance: CRIZOTINIB
     Dosage: 165 MG/M2, BID, CYCLE 6, ON DAYS 1-21
     Route: 048
     Dates: start: 20160402, end: 20160411
  16. METHOTREXATE SODIUM. [Suspect]
     Active Substance: METHOTREXATE SODIUM
     Indication: ANAPLASTIC LARGE CELL LYMPHOMA T- AND NULL-CELL TYPES
     Dosage: 3000 MG/M2 OVER 3 HOURS ON DAY 1
     Route: 037
     Dates: start: 20151130, end: 2016
  17. METHOTREXATE SODIUM. [Suspect]
     Active Substance: METHOTREXATE SODIUM
     Dosage: 3000 MG/M2 OVER 3 HOURS ON DAY 1, CYCLE 6
     Route: 042
     Dates: start: 20160402, end: 20160402
  18. LEUCOVORIN. [Suspect]
     Active Substance: LEUCOVORIN
     Dosage: UNK
     Dates: start: 20160313, end: 20160315
  19. MESNA. [Suspect]
     Active Substance: MESNA
     Dosage: UNK
     Dates: start: 20151207, end: 20151212
  20. LEUCOVORIN. [Suspect]
     Active Substance: LEUCOVORIN
     Dosage: UNK
     Dates: start: 20160403, end: 20160409

REACTIONS (9)
  - Hypotension [Unknown]
  - Respiratory failure [Unknown]
  - Febrile neutropenia [Unknown]
  - Sepsis [Unknown]
  - Sinus tachycardia [Unknown]
  - Gastroenteritis [Unknown]
  - Pulmonary oedema [Unknown]
  - Stomatitis [Unknown]
  - Leptotrichia infection [Unknown]

NARRATIVE: CASE EVENT DATE: 20160407
